FAERS Safety Report 6672071-3 (Version None)
Quarter: 2010Q2

REPORT INFORMATION
  Report Type: 
  Country: None (occurrence: None)
  Receive Date: 20100407
  Receipt Date: 20100407
  Transmission Date: 20101027
  Serious: No
  Sender: FDA-Public Use
  Company Number: None

PATIENT
  Sex: Male
  Weight: 74.1 kg

DRUGS (1)
  1. PEG-INTRON [Suspect]
     Dosage: 390 MCG

REACTIONS (2)
  - CLOSTRIDIUM TEST POSITIVE [None]
  - MUCOUS STOOLS [None]
